FAERS Safety Report 20006589 (Version 1)
Quarter: 2021Q4

REPORT INFORMATION
  Report Type: Spontaneous
  Country: CN (occurrence: CN)
  Receive Date: 20211028
  Receipt Date: 20211028
  Transmission Date: 20220303
  Serious: Yes (Other)
  Sender: FDA-Public Use
  Company Number: CN-LUPIN PHARMACEUTICALS INC.-2021-20878

PATIENT
  Age: 1 Year
  Sex: Male

DRUGS (18)
  1. LEVETIRACETAM [Suspect]
     Active Substance: LEVETIRACETAM
     Indication: Developmental delay
     Dosage: UNK
     Route: 065
  2. LEVETIRACETAM [Suspect]
     Active Substance: LEVETIRACETAM
     Indication: Epileptic encephalopathy
  3. LEVETIRACETAM [Suspect]
     Active Substance: LEVETIRACETAM
     Indication: Movement disorder
  4. TOPIRAMATE [Suspect]
     Active Substance: TOPIRAMATE
     Indication: Developmental delay
     Dosage: UNK
     Route: 065
  5. TOPIRAMATE [Suspect]
     Active Substance: TOPIRAMATE
     Indication: Epileptic encephalopathy
  6. TOPIRAMATE [Suspect]
     Active Substance: TOPIRAMATE
     Indication: Movement disorder
  7. LACOSAMIDE [Suspect]
     Active Substance: LACOSAMIDE
     Indication: Developmental delay
     Dosage: UNK
     Route: 065
  8. LACOSAMIDE [Suspect]
     Active Substance: LACOSAMIDE
     Indication: Epileptic encephalopathy
  9. LACOSAMIDE [Suspect]
     Active Substance: LACOSAMIDE
     Indication: Movement disorder
  10. VALPROIC ACID [Suspect]
     Active Substance: VALPROIC ACID
     Indication: Developmental delay
     Dosage: UNK
     Route: 065
  11. VALPROIC ACID [Suspect]
     Active Substance: VALPROIC ACID
     Indication: Epileptic encephalopathy
  12. VALPROIC ACID [Suspect]
     Active Substance: VALPROIC ACID
     Indication: Movement disorder
  13. OXCARBAZEPINE [Suspect]
     Active Substance: OXCARBAZEPINE
     Indication: Developmental delay
     Dosage: UNK
     Route: 065
  14. OXCARBAZEPINE [Suspect]
     Active Substance: OXCARBAZEPINE
     Indication: Epileptic encephalopathy
  15. OXCARBAZEPINE [Suspect]
     Active Substance: OXCARBAZEPINE
     Indication: Movement disorder
  16. CLONAZEPAM [Suspect]
     Active Substance: CLONAZEPAM
     Indication: Developmental delay
     Dosage: UNK
     Route: 065
  17. CLONAZEPAM [Suspect]
     Active Substance: CLONAZEPAM
     Indication: Epileptic encephalopathy
  18. CLONAZEPAM [Suspect]
     Active Substance: CLONAZEPAM
     Indication: Movement disorder

REACTIONS (1)
  - Epilepsy [Unknown]
